FAERS Safety Report 21330540 (Version 8)
Quarter: 2022Q4

REPORT INFORMATION
  Report Type: Report from Study
  Country: CN (occurrence: CN)
  Receive Date: 20220913
  Receipt Date: 20221114
  Transmission Date: 20230113
  Serious: Yes (Life-Threatening, Hospitalization)
  Sender: FDA-Public Use
  Company Number: CN-KARYOPHARM-2022KPT001063

PATIENT
  Age: 56 Year
  Sex: Male

DRUGS (24)
  1. SELINEXOR [Suspect]
     Active Substance: SELINEXOR
     Indication: Lymphoma
     Dosage: 60 MG CYCLIC
     Route: 048
     Dates: start: 20220216, end: 20220216
  2. SELINEXOR [Suspect]
     Active Substance: SELINEXOR
     Dosage: 40 MG CYCLIC
     Route: 048
     Dates: start: 20220309, end: 20220318
  3. SELINEXOR [Suspect]
     Active Substance: SELINEXOR
     Dosage: 60 MG CYCLIC
     Route: 048
     Dates: start: 20220331, end: 20220513
  4. SELINEXOR [Suspect]
     Active Substance: SELINEXOR
     Dosage: 40 MG CYCLIC
     Route: 048
     Dates: start: 20220524, end: 20220524
  5. SELINEXOR [Suspect]
     Active Substance: SELINEXOR
     Dosage: 60 MG CYCLIC
     Route: 048
     Dates: start: 20220607, end: 20220607
  6. SELINEXOR [Suspect]
     Active Substance: SELINEXOR
     Dosage: 40 MG CYCLIC
     Route: 048
     Dates: start: 20220616, end: 20220616
  7. SELINEXOR [Suspect]
     Active Substance: SELINEXOR
     Dosage: 60 MG CYCLIC
     Route: 048
     Dates: start: 20220629, end: 20220830
  8. GEMCITABINE [Suspect]
     Active Substance: GEMCITABINE
     Indication: Lymphoma
     Dosage: 1.87 G CYCLIC
     Route: 041
     Dates: start: 20220216, end: 20220216
  9. GEMCITABINE [Suspect]
     Active Substance: GEMCITABINE
     Dosage: 1.84 G CYCLIC
     Route: 041
     Dates: start: 20220309, end: 20220318
  10. GEMCITABINE [Suspect]
     Active Substance: GEMCITABINE
     Dosage: 1.83 G CYCLIC
     Route: 041
     Dates: start: 20220331, end: 20220331
  11. GEMCITABINE [Suspect]
     Active Substance: GEMCITABINE
     Dosage: 1.79 G CYCLIC
     Route: 041
     Dates: start: 20220408, end: 20220408
  12. GEMCITABINE [Suspect]
     Active Substance: GEMCITABINE
     Dosage: 1.85 G CYCLIC
     Route: 041
     Dates: start: 20220421, end: 20220429
  13. GEMCITABINE [Suspect]
     Active Substance: GEMCITABINE
     Dosage: 1.83 G CYCLIC
     Route: 041
     Dates: start: 20220513, end: 20220513
  14. GEMCITABINE [Suspect]
     Active Substance: GEMCITABINE
     Dosage: 0.9 G CYCLIC
     Route: 041
     Dates: start: 20220524, end: 20220524
  15. GEMCITABINE [Suspect]
     Active Substance: GEMCITABINE
     Dosage: 1.79 G CYCLIC
     Route: 041
     Dates: start: 20220607, end: 20220607
  16. OXALIPLATIN [Suspect]
     Active Substance: OXALIPLATIN
     Indication: Lymphoma
     Dosage: 224 MG CYCLIC
     Route: 041
     Dates: start: 20220216, end: 20220216
  17. OXALIPLATIN [Suspect]
     Active Substance: OXALIPLATIN
     Dosage: 239 MG CYCLIC
     Route: 041
     Dates: start: 20220309, end: 20220309
  18. OXALIPLATIN [Suspect]
     Active Substance: OXALIPLATIN
     Dosage: 238 MG CYCLIC
     Route: 041
     Dates: start: 20220331, end: 20220331
  19. OXALIPLATIN [Suspect]
     Active Substance: OXALIPLATIN
     Dosage: 241 MG CYCLIC
     Route: 041
     Dates: start: 20220421, end: 20220421
  20. OXALIPLATIN [Suspect]
     Active Substance: OXALIPLATIN
     Dosage: 238 MG CYCLIC
     Route: 041
     Dates: start: 20220513, end: 20220513
  21. OXALIPLATIN [Suspect]
     Active Substance: OXALIPLATIN
     Dosage: 233 MG CYCLIC
     Route: 041
     Dates: start: 20220607, end: 20220607
  22. MONTELUKAST [Concomitant]
     Active Substance: MONTELUKAST SODIUM
  23. TAMSULOSIN [Concomitant]
     Active Substance: TAMSULOSIN
  24. PROSCAR [Concomitant]
     Active Substance: FINASTERIDE

REACTIONS (1)
  - Pneumonia [Not Recovered/Not Resolved]

NARRATIVE: CASE EVENT DATE: 20220903
